FAERS Safety Report 15223461 (Version 1)
Quarter: 2018Q3

REPORT INFORMATION
  Report Type: Spontaneous
  Country: US (occurrence: US)
  Receive Date: 20180731
  Receipt Date: 20180731
  Transmission Date: 20181010
  Serious: No
  Sender: FDA-Public Use
  Company Number: US-ENDO PHARMACEUTICALS INC-2017-006175

PATIENT
  Sex: Male

DRUGS (1)
  1. TESTOPEL [Suspect]
     Active Substance: TESTOSTERONE
     Indication: PRODUCT USED FOR UNKNOWN INDICATION
     Dosage: SEVEN, 75 MG PELLETS IMPLANTED (525 MG), INTO THE BUTTOCKS
     Route: 065
     Dates: start: 20170922

REACTIONS (3)
  - Prescribed overdose [Unknown]
  - Rash [Unknown]
  - Expulsion of medication [Unknown]

NARRATIVE: CASE EVENT DATE: 2017
